FAERS Safety Report 16983741 (Version 1)
Quarter: 2019Q4

REPORT INFORMATION
  Report Type: Spontaneous
  Country: US (occurrence: US)
  Receive Date: 20191101
  Receipt Date: 20191101
  Transmission Date: 20200122
  Serious: No
  Sender: FDA-Public Use
  Company Number: US-GRANULES INDIA LIMITED-2076332

PATIENT
  Age: 55 Year
  Sex: Female
  Weight: 72.73 kg

DRUGS (5)
  1. TRIAMCINOLONE [Suspect]
     Active Substance: TRIAMCINOLONE
  2. CLOBETASOL [Suspect]
     Active Substance: CLOBETASOL
  3. BETAMETHASONE. [Suspect]
     Active Substance: BETAMETHASONE
  4. EUCRISA [Suspect]
     Active Substance: CRISABOROLE
  5. METFORMIN HYDROCHLORIDE. [Suspect]
     Active Substance: METFORMIN HYDROCHLORIDE
     Indication: TYPE 2 DIABETES MELLITUS
     Route: 048

REACTIONS (2)
  - Condition aggravated [Not Recovered/Not Resolved]
  - Dermatitis contact [Not Recovered/Not Resolved]
